FAERS Safety Report 7765758-2 (Version None)
Quarter: 2011Q3

REPORT INFORMATION
  Report Type: 
  Country: None (occurrence: None)
  Receive Date: 20110921
  Receipt Date: 20110912
  Transmission Date: 20111222
  Serious: Yes (Hospitalization, Other)
  Sender: FDA-Public Use
  Company Number: US-AMGEN-USASP2011046387

PATIENT
  Age: 76 Year
  Sex: Female
  Weight: 65.76 kg

DRUGS (12)
  1. PERCOCET [Concomitant]
  2. RAMIPRIL [Concomitant]
  3. PREDNISONE [Concomitant]
     Indication: IDIOPATHIC THROMBOCYTOPENIC PURPURA
     Dosage: 10 MG, TID
     Dates: start: 20101013, end: 20110512
  4. ACTONEL [Concomitant]
  5. ASPIRIN [Concomitant]
     Dosage: 81 MG, UNK
  6. DANAZOL [Concomitant]
     Indication: IDIOPATHIC THROMBOCYTOPENIC PURPURA
     Dosage: 200 MG, UNK
     Dates: start: 20101117, end: 20110512
  7. HYDROCHLOROTHIAZIDE [Concomitant]
  8. LIPITOR [Concomitant]
  9. NPLATE [Suspect]
     Indication: IDIOPATHIC THROMBOCYTOPENIC PURPURA
     Dates: start: 20110414
  10. VITAMIN D [Concomitant]
  11. ZOLOFT [Concomitant]
  12. NEXIUM [Concomitant]

REACTIONS (2)
  - BIOPSY BONE MARROW ABNORMAL [None]
  - ACUTE MYELOID LEUKAEMIA [None]
